FAERS Safety Report 5492914-9 (Version None)
Quarter: 2007Q4

REPORT INFORMATION
  Report Type: 
  Country: None (occurrence: None)
  Receive Date: 20071023
  Receipt Date: 20071012
  Transmission Date: 20080405
  Serious: Yes (Hospitalization)
  Sender: FDA-Public Use
  Company Number: FR-BAYER-200710579BFR

PATIENT
  Age: 11 Year
  Sex: Male

DRUGS (4)
  1. CIFLOX [Suspect]
     Indication: FEBRILE BONE MARROW APLASIA
     Dosage: TOTAL DAILY DOSE: 600 MG
     Route: 048
     Dates: start: 20070903, end: 20070914
  2. ORELOX [Suspect]
     Indication: FEBRILE BONE MARROW APLASIA
     Route: 048
     Dates: start: 20070903, end: 20070914
  3. DEXAMETHASONE 0.5MG TAB [Suspect]
     Indication: T-CELL TYPE ACUTE LEUKAEMIA
     Route: 048
     Dates: start: 20070820, end: 20070909
  4. CHEMOTHERAPEUTICS [Concomitant]
     Indication: T-CELL TYPE ACUTE LEUKAEMIA

REACTIONS (5)
  - ABNORMAL BEHAVIOUR [None]
  - AGGRESSION [None]
  - AGITATION [None]
  - HALLUCINATION, VISUAL [None]
  - MANIA [None]
